FAERS Safety Report 9983374 (Version 1)
Quarter: 2014Q1

REPORT INFORMATION
  Report Type: Report from Study
  Country: AR (occurrence: AR)
  Receive Date: 20140307
  Receipt Date: 20140307
  Transmission Date: 20141002
  Serious: Yes (Death)
  Sender: FDA-Public Use
  Company Number: PHHY2014AR028179

PATIENT
  Age: 81 Year
  Sex: Male

DRUGS (1)
  1. DIOVAN D [Suspect]
     Dosage: 160/12.5 MG, UNK
     Route: 048

REACTIONS (1)
  - Death [Fatal]
